FAERS Safety Report 11587900 (Version 1)
Quarter: 2015Q4

REPORT INFORMATION
  Report Type: Spontaneous
  Country: DE (occurrence: DE)
  Receive Date: 20151001
  Receipt Date: 20151001
  Transmission Date: 20160304
  Serious: Yes (Hospitalization)
  Sender: FDA-Public Use
  Company Number: DE-SA-2015SA142757

PATIENT
  Age: 26 Year
  Sex: Female

DRUGS (1)
  1. LEMTRADA [Suspect]
     Active Substance: ALEMTUZUMAB
     Indication: MULTIPLE SCLEROSIS
     Route: 041
     Dates: start: 20141013, end: 20141017

REACTIONS (8)
  - Computerised tomogram thorax abnormal [Recovered/Resolved]
  - Obstructive airways disorder [Recovered/Resolved]
  - Computerised tomogram abnormal [Recovered/Resolved]
  - Fungal infection [Unknown]
  - Alveolitis allergic [Recovered/Resolved]
  - Depression [Unknown]
  - Nasopharyngitis [Not Recovered/Not Resolved]
  - Asthma [Unknown]

NARRATIVE: CASE EVENT DATE: 201412
